FAERS Safety Report 19507232 (Version 1)
Quarter: 2021Q3

REPORT INFORMATION
  Report Type: Spontaneous
  Country: NL (occurrence: DE)
  Receive Date: 20210708
  Receipt Date: 20210708
  Transmission Date: 20211014
  Serious: Yes (Hospitalization)
  Sender: FDA-Public Use
  Company Number: DE-FRESENIUS KABI-FK202106883

PATIENT
  Age: 78 Year
  Sex: Male
  Weight: 88.4 kg

DRUGS (15)
  1. CETIRIZINE HYDROCHLORIDE. [Concomitant]
     Active Substance: CETIRIZINE HYDROCHLORIDE
     Indication: PRODUCT USED FOR UNKNOWN INDICATION
     Dosage: 10 MG, AS REQUIRED, TABLETS
     Route: 048
  2. TORASEMIDE [Concomitant]
     Active Substance: TORSEMIDE
     Indication: PRODUCT USED FOR UNKNOWN INDICATION
     Dosage: 40 MG, 1?0?0?0, TABLETS
     Route: 048
  3. NALOXONE/TILIDINE [Concomitant]
     Active Substance: NALOXONE HYDROCHLORIDE\TILIDINE HYDROCHLORIDE
     Indication: PRODUCT USED FOR UNKNOWN INDICATION
     Dosage: 8|100 MG, 1?0?1?0, TABLETS
     Route: 048
  4. METAMIZOLE [Concomitant]
     Active Substance: METAMIZOLE
     Indication: PRODUCT USED FOR UNKNOWN INDICATION
     Dosage: 1 G, 1?1?1?1, TABLETS
     Route: 048
  5. GEMCITABINE. [Suspect]
     Active Substance: GEMCITABINE
     Indication: PRODUCT USED FOR UNKNOWN INDICATION
     Dosage: ACCORDING TO PLAN, SOLUTION FOR INJECTION/INFUSION
     Route: 042
  6. ALLOPURINOL. [Concomitant]
     Active Substance: ALLOPURINOL
     Indication: PRODUCT USED FOR UNKNOWN INDICATION
     Dosage: 300 MG, 0.5?0?0?0, TABLETS
     Route: 048
  7. GLYCOPYRRONIUM BROMIDE/INDACATEROL [Concomitant]
     Indication: PRODUCT USED FOR UNKNOWN INDICATION
     Dosage: 85|43 UG, 1?0?0?0, METERED INHALER
     Route: 055
  8. PANTOPRAZOLE [Concomitant]
     Active Substance: PANTOPRAZOLE
     Indication: PRODUCT USED FOR UNKNOWN INDICATION
     Dosage: 40 MG, 1?0?0?0, TABLETS
     Route: 048
  9. METOPROLOL. [Concomitant]
     Active Substance: METOPROLOL
     Indication: PRODUCT USED FOR UNKNOWN INDICATION
     Dosage: 23.75 MG, 1?0?1?0, PROLONGED RELEASE TABLETS
     Route: 048
  10. INSULIN GLARGINE [Suspect]
     Active Substance: INSULIN GLARGINE
     Indication: PRODUCT USED FOR UNKNOWN INDICATION
     Dosage: 24 IE, 0?0?0?1, SOLUTION FOR INJECTION/INFUSION
     Route: 058
  11. TINZAPARIN [Concomitant]
     Active Substance: TINZAPARIN
     Indication: PRODUCT USED FOR UNKNOWN INDICATION
     Dosage: 14000|0.7 I.E/ML, 1?0?0?0, SOLUTION FOR INJECTION/INFUSION
     Route: 058
  12. PACLITAXEL (MANUFACTURER UNKNOWN) [Suspect]
     Active Substance: PACLITAXEL
     Indication: PRODUCT USED FOR UNKNOWN INDICATION
     Dosage: ACCORDING TO PLAN, SOLUTION FOR INJECTION/INFUSION
     Route: 042
  13. INSULIN LISPRO [Suspect]
     Active Substance: INSULIN LISPRO
     Indication: PRODUCT USED FOR UNKNOWN INDICATION
     Dosage: ACCORDING TO PLAN, SOLUTION FOR INJECTION/INFUSION
     Route: 058
  14. PANCREATIN [Concomitant]
     Active Substance: PANCRELIPASE
     Indication: PRODUCT USED FOR UNKNOWN INDICATION
     Dosage: 25000 IE, 1?1?1?0, CAPSULE?PANCREAS POWDER FROM PORC
     Route: 048
  15. COLECALCIFEROL [Concomitant]
     Active Substance: CHOLECALCIFEROL
     Indication: PRODUCT USED FOR UNKNOWN INDICATION
     Dosage: 20000 IE, ONCE WEEKLY CAPSULES?COLECALCIFEROL (VITAMIN D)
     Route: 048

REACTIONS (5)
  - Night sweats [Unknown]
  - Medication error [Unknown]
  - General physical health deterioration [Unknown]
  - Fatigue [Unknown]
  - Diarrhoea [Unknown]
